FAERS Safety Report 9143181 (Version 1)
Quarter: 2013Q1

REPORT INFORMATION
  Report Type: Spontaneous
  Country: US (occurrence: US)
  Receive Date: 20130306
  Receipt Date: 20130306
  Transmission Date: 20140127
  Serious: No
  Sender: FDA-Public Use
  Company Number: US-ENDO PHARMACEUTICALS INC.-OPER20100194

PATIENT
  Sex: Male

DRUGS (4)
  1. OPANA ER [Suspect]
     Indication: PAIN
     Dosage: 60 MG
     Route: 048
  2. OPANA ER [Suspect]
     Dosage: 40 MG
     Route: 048
  3. OPANA ER [Suspect]
     Dosage: 30 MG
     Route: 048
  4. OPANA ER [Suspect]
     Dosage: 20 MG
     Route: 048

REACTIONS (3)
  - Drug detoxification [Not Recovered/Not Resolved]
  - Nightmare [Unknown]
  - Withdrawal syndrome [Not Recovered/Not Resolved]
